FAERS Safety Report 22097307 (Version 2)
Quarter: 2023Q1

REPORT INFORMATION
  Report Type: Spontaneous
  Country: CA (occurrence: CA)
  Receive Date: 20230315
  Receipt Date: 20230319
  Transmission Date: 20230417
  Serious: Yes (Other)
  Sender: FDA-Public Use
  Company Number: CA-CELLTRION INC.-2021CA018547

PATIENT

DRUGS (24)
  1. INFLECTRA [Suspect]
     Active Substance: INFLIXIMAB-DYYB
     Indication: Crohn^s disease
     Dosage: 5 MG/KG, (350 MG) 0, 2, 6 WEEKS, THEN EVERY 8 WEEKS
     Route: 042
     Dates: start: 20190208, end: 20200303
  2. INFLECTRA [Suspect]
     Active Substance: INFLIXIMAB-DYYB
     Dosage: 400 MG, EVERY 6 WEEK
     Route: 042
     Dates: start: 20200413, end: 20200707
  3. INFLECTRA [Suspect]
     Active Substance: INFLIXIMAB-DYYB
     Dosage: 800 MG, EVERY 6 WEEK
     Route: 042
     Dates: start: 20200903, end: 20200903
  4. INFLECTRA [Suspect]
     Active Substance: INFLIXIMAB-DYYB
     Dosage: 800 MG, EVERY 4 WEEK
     Route: 042
     Dates: start: 20201007, end: 20210111
  5. INFLECTRA [Suspect]
     Active Substance: INFLIXIMAB-DYYB
     Dosage: 900 MG (12.5 MG/KG) EVERY 4 WEEK
     Route: 042
     Dates: start: 20210205
  6. INFLECTRA [Suspect]
     Active Substance: INFLIXIMAB-DYYB
     Dosage: 900 MG (12.5 MG/KG) EVERY 4 WEEK
     Route: 042
     Dates: start: 20211215
  7. INFLECTRA [Suspect]
     Active Substance: INFLIXIMAB-DYYB
     Dosage: 900 MG (12.5 MG/KG) EVERY 4 WEEK
     Route: 042
     Dates: start: 20220208
  8. INFLECTRA [Suspect]
     Active Substance: INFLIXIMAB-DYYB
     Dosage: 900 MG (12.5 MG/KG) EVERY 4 WEEK
     Route: 042
     Dates: start: 20220404
  9. INFLECTRA [Suspect]
     Active Substance: INFLIXIMAB-DYYB
     Dosage: 900 MG (12.5 MG/KG) EVERY 4 WEEK
     Route: 042
     Dates: start: 20220502
  10. INFLECTRA [Suspect]
     Active Substance: INFLIXIMAB-DYYB
     Dosage: 900 MG (12.5 MG/KG) EVERY 4 WEEK
     Route: 042
     Dates: start: 20220816
  11. INFLECTRA [Suspect]
     Active Substance: INFLIXIMAB-DYYB
     Dosage: 900 MG (12.5 MG/KG) EVERY 4 WEEK
     Route: 042
     Dates: start: 20220912
  12. INFLECTRA [Suspect]
     Active Substance: INFLIXIMAB-DYYB
     Dosage: 900 MG (12.5 MG/KG) EVERY 4 WEEK
     Route: 042
     Dates: start: 20221017
  13. INFLECTRA [Suspect]
     Active Substance: INFLIXIMAB-DYYB
     Dosage: 900 MG (12.5 MG/KG) EVERY 4 WEEK
     Route: 042
     Dates: start: 20221118
  14. INFLECTRA [Suspect]
     Active Substance: INFLIXIMAB-DYYB
     Dosage: 900 MG (12.5 MG/KG) EVERY 4 WEEK
     Route: 042
     Dates: start: 20230109
  15. INFLECTRA [Suspect]
     Active Substance: INFLIXIMAB-DYYB
     Dosage: 900 MG (12.5 MG/KG) EVERY 4 WEEK
     Route: 042
     Dates: start: 20230206
  16. INFLECTRA [Suspect]
     Active Substance: INFLIXIMAB-DYYB
     Dosage: 900 MG EVERY 4 WEEK
     Route: 042
     Dates: start: 20230306
  17. INFLECTRA [Suspect]
     Active Substance: INFLIXIMAB-DYYB
     Dosage: 900 MG EVERY 4 WEEK
     Route: 042
     Dates: start: 20230306
  18. ALESSE 28 [Concomitant]
     Active Substance: ETHINYL ESTRADIOL\LEVONORGESTREL
     Dosage: 1 DF, 1X/DAY (1 TABLET OD)
     Route: 048
  19. IMURAN [Concomitant]
     Active Substance: AZATHIOPRINE
     Dosage: 150 MG,FREQUENCY IS UNKNOWN
     Route: 065
  20. LOSEC [Concomitant]
     Active Substance: OMEPRAZOLE
     Dosage: 1 DF, DOSAGE IS UNKNOWN
     Route: 065
  21. SULFASALAZINE [Concomitant]
     Active Substance: SULFASALAZINE
     Dosage: UNK
  22. SYNTHROID [Concomitant]
     Active Substance: LEVOTHYROXINE SODIUM
     Dosage: 1 DF 0.75 MG
     Route: 065
  23. TYLENOL [Concomitant]
     Active Substance: ACETAMINOPHEN
     Indication: Pain
     Dosage: 1 DF, DOSAGE IS UNKNOWN
     Route: 065
  24. METHOTREXATE SODIUM [Concomitant]
     Active Substance: METHOTREXATE SODIUM
     Dosage: UNK
     Dates: start: 20220719

REACTIONS (13)
  - Psoriatic arthropathy [Recovering/Resolving]
  - Throat irritation [Recovered/Resolved]
  - Flushing [Recovered/Resolved]
  - Arthralgia [Recovering/Resolving]
  - Arthropathy [Unknown]
  - Joint swelling [Not Recovered/Not Resolved]
  - Loss of personal independence in daily activities [Not Recovered/Not Resolved]
  - Off label use [Unknown]
  - Intentional product use issue [Unknown]
  - Off label use [Unknown]
  - Off label use [Unknown]
  - Inappropriate schedule of product administration [Unknown]
  - Product administration interrupted [Unknown]

NARRATIVE: CASE EVENT DATE: 20200413
